FAERS Safety Report 7022434-1 (Version None)
Quarter: 2010Q3

REPORT INFORMATION
  Report Type: 
  Country: None (occurrence: None)
  Receive Date: 20100930
  Receipt Date: 20100923
  Transmission Date: 20110219
  Serious: Yes (Death)
  Sender: FDA-Public Use
  Company Number: CO-ROCHE-728842

PATIENT
  Sex: Female

DRUGS (1)
  1. CELLCEPT [Suspect]
     Indication: SYSTEMIC LUPUS ERYTHEMATOSUS
     Dosage: FREQUENCY: QD
     Route: 048
     Dates: start: 20070813, end: 20100708

REACTIONS (1)
  - DISEASE PROGRESSION [None]
